FAERS Safety Report 7742110-7 (Version None)
Quarter: 2011Q3

REPORT INFORMATION
  Report Type: 
  Country: None (occurrence: None)
  Receive Date: 20110829
  Receipt Date: 20110815
  Transmission Date: 20111222
  Serious: Yes (Hospitalization)
  Sender: FDA-Public Use
  Company Number: 2010SP014821

PATIENT
  Age: 18 Year
  Sex: Female
  Weight: 76.2043 kg

DRUGS (5)
  1. MULTI-VITAMINS [Concomitant]
  2. INH [Concomitant]
  3. NUVARING [Suspect]
     Indication: MENOMETRORRHAGIA
     Dosage: QM;VAG
     Route: 067
     Dates: start: 20060831, end: 20070801
  4. NUVARING [Suspect]
     Indication: DYSMENORRHOEA
     Dosage: QM;VAG
     Route: 067
     Dates: start: 20060831, end: 20070801
  5. HEPARIN [Suspect]
     Indication: PRODUCT USED FOR UNKNOWN INDICATION

REACTIONS (11)
  - ANTITHROMBIN III DECREASED [None]
  - PAIN IN EXTREMITY [None]
  - OEDEMA PERIPHERAL [None]
  - APPENDICITIS [None]
  - APPENDICEAL ABSCESS [None]
  - PREGNANCY [None]
  - MATERNAL EXPOSURE BEFORE PREGNANCY [None]
  - HERPES VIRUS INFECTION [None]
  - OVARIAN ENLARGEMENT [None]
  - DEEP VEIN THROMBOSIS [None]
  - DYSPNOEA [None]
